FAERS Safety Report 24372132 (Version 2)
Quarter: 2025Q3

REPORT INFORMATION
  Report Type: Spontaneous
  Country: US (occurrence: US)
  Receive Date: 20240927
  Receipt Date: 20250704
  Transmission Date: 20251020
  Serious: Yes (Other)
  Sender: KEDRION
  Company Number: US-KEDRION-009638

PATIENT
  Age: 84 Year
  Sex: Male

DRUGS (5)
  1. ALBUMIN HUMAN [Suspect]
     Active Substance: ALBUMIN HUMAN
     Indication: Ascites
     Route: 065
  2. VANCOMYCIN [Concomitant]
     Active Substance: VANCOMYCIN
     Indication: Shock
     Route: 065
  3. CEFEPIME [Concomitant]
     Active Substance: CEFEPIME HYDROCHLORIDE
     Indication: Shock
     Route: 065
  4. METRONIDAZOLE [Concomitant]
     Active Substance: METRONIDAZOLE
     Indication: Shock
     Route: 065
  5. FUROSEMIDE [Concomitant]
     Active Substance: FUROSEMIDE
     Indication: Product used for unknown indication
     Route: 042

REACTIONS (1)
  - Anaphylactic shock [Recovering/Resolving]
